FAERS Safety Report 17610381 (Version 2)
Quarter: 2020Q2

REPORT INFORMATION
  Report Type: Spontaneous
  Country: US (occurrence: US)
  Receive Date: 20200401
  Receipt Date: 20200401
  Transmission Date: 20200713
  Serious: Yes (Other)
  Sender: FDA-Public Use
  Company Number: US-PFIZER INC-2020129556

PATIENT
  Age: 26 Year
  Sex: Male

DRUGS (2)
  1. LIDOCAINE. [Concomitant]
     Active Substance: LIDOCAINE
     Indication: LOCAL ANAESTHESIA
     Dosage: 41 ML, UNK (FOLLOWED BY 20 ML OF A SALINE SOLUTION)
     Route: 042
  2. SODIUM CHLORIDE. [Suspect]
     Active Substance: SODIUM CHLORIDE
     Dosage: 20 ML, UNK (HYPERTONIC (23.4%) SALINE AS A CHASER, VOLUME 0.6 ML/KG)
     Route: 042

REACTIONS (2)
  - Compartment syndrome [Recovered/Resolved]
  - Wrong strength [Unknown]
